FAERS Safety Report 4889880-3 (Version None)
Quarter: 2006Q1

REPORT INFORMATION
  Report Type: 
  Country: None (occurrence: None)
  Receive Date: 20060124
  Receipt Date: 20060103
  Transmission Date: 20060701
  Serious: Yes (Hospitalization, Other)
  Sender: FDA-Public Use
  Company Number: US-MERCK-0601USA00280

PATIENT
  Age: 54 Year
  Sex: Female
  Weight: 124 kg

DRUGS (2)
  1. VIOXX [Suspect]
     Indication: SHOULDER PAIN
     Route: 048
     Dates: start: 20000309, end: 20040904
  2. VIOXX [Suspect]
     Indication: BACK PAIN
     Route: 048
     Dates: start: 20000309, end: 20040904

REACTIONS (14)
  - ACUTE CORONARY SYNDROME [None]
  - ANXIETY [None]
  - DEPRESSION [None]
  - DYSPNOEA EXERTIONAL [None]
  - HYPERTENSION [None]
  - HYPOXIA [None]
  - INSOMNIA [None]
  - LIMB INJURY [None]
  - MYOCARDIAL INFARCTION [None]
  - OSTEOARTHRITIS [None]
  - OSTEOPOROSIS [None]
  - OVERDOSE [None]
  - PRINZMETAL ANGINA [None]
  - SLEEP APNOEA SYNDROME [None]
